FAERS Safety Report 9708244 (Version 2)
Quarter: 2013Q4

REPORT INFORMATION
  Report Type: Report from Study
  Country: DE (occurrence: DE)
  Receive Date: 20131125
  Receipt Date: 20131125
  Transmission Date: 20140711
  Serious: Yes (Death)
  Sender: FDA-Public Use
  Company Number: PHHO2011DE09980

PATIENT
  Sex: 0

DRUGS (5)
  1. AFINITOR [Suspect]
     Indication: THYROID CANCER
     Dosage: 2.5 MG, QD
     Route: 048
     Dates: start: 20110217, end: 20110407
  2. AFINITOR [Suspect]
     Dosage: 2.5 MG, QD
     Route: 048
     Dates: start: 20110504, end: 20110602
  3. DOXORUBICIN [Concomitant]
     Indication: THYROID CANCER
     Dosage: 50 MG, QD
     Route: 042
     Dates: start: 20110316, end: 20110425
  4. DOXORUBICIN [Concomitant]
     Dosage: 50 MG, QD
     Route: 042
     Dates: start: 20110525
  5. LEVOTHYROXINE [Concomitant]
     Indication: THYROIDECTOMY
     Dosage: 225 UG, UNK
     Dates: end: 20110508

REACTIONS (3)
  - Pneumonitis [Fatal]
  - Respiratory failure [Fatal]
  - Pulmonary embolism [Fatal]
